FAERS Safety Report 14788009 (Version 5)
Quarter: 2020Q1

REPORT INFORMATION
  Report Type: Report from Study
  Country: DE (occurrence: DE)
  Receive Date: 20180422
  Receipt Date: 20200131
  Transmission Date: 20200409
  Serious: Yes (Other)
  Sender: FDA-Public Use
  Company Number: DE-ROCHE-2111664

PATIENT
  Age: 56 Year
  Sex: Female
  Weight: 79 kg

DRUGS (3)
  1. RANIBIZUMAB. [Suspect]
     Active Substance: RANIBIZUMAB
     Dosage: 0.5 MG, 1 X (LEFT EYE)
     Route: 031
     Dates: start: 20170914, end: 20170914
  2. RANIBIZUMAB. [Suspect]
     Active Substance: RANIBIZUMAB
     Indication: DIABETIC RETINAL OEDEMA
     Dosage: 0.5 MG, 1 X (LEFT EYE)
     Route: 031
     Dates: start: 20170720
  3. RANIBIZUMAB. [Suspect]
     Active Substance: RANIBIZUMAB
     Indication: VISUAL IMPAIRMENT
     Dosage: 0.5 MG, 1 X (LEFT EYE)
     Route: 031
     Dates: start: 20170817

REACTIONS (2)
  - Retinal cyst [Unknown]
  - Cystoid macular oedema [Not Recovered/Not Resolved]

NARRATIVE: CASE EVENT DATE: 20171005
